FAERS Safety Report 21440836 (Version 2)
Quarter: 2022Q4

REPORT INFORMATION
  Report Type: Report from Study
  Country: US (occurrence: US)
  Receive Date: 20221011
  Receipt Date: 20221207
  Transmission Date: 20230113
  Serious: No
  Sender: FDA-Public Use
  Company Number: US-ABBVIE-4144389

PATIENT
  Age: 51 Year
  Sex: Male
  Weight: 63.502 kg

DRUGS (11)
  1. DUOPA [Suspect]
     Active Substance: CARBIDOPA\LEVODOPA
     Indication: Parkinson^s disease
     Dates: start: 20211020
  2. DUOPA [Suspect]
     Active Substance: CARBIDOPA\LEVODOPA
     Route: 050
     Dates: start: 20211020
  3. DUOPA [Suspect]
     Active Substance: CARBIDOPA\LEVODOPA
  4. GOCOVRI [Concomitant]
     Active Substance: AMANTADINE
     Indication: Dyskinesia
     Route: 065
  5. CARBIDOPA\LEVODOPA [Concomitant]
     Active Substance: CARBIDOPA\LEVODOPA
     Indication: Product used for unknown indication
     Route: 048
  6. RYTARY [Concomitant]
     Active Substance: CARBIDOPA\LEVODOPA
     Indication: Parkinson^s disease
     Route: 065
  7. ADVIL PM [Concomitant]
     Active Substance: DIPHENHYDRAMINE CITRATE\IBUPROFEN
     Indication: Sleep disorder
     Route: 065
  8. MELATONIN [Concomitant]
     Active Substance: MELATONIN
     Indication: Sleep disorder
     Route: 065
  9. Quick silver [Concomitant]
     Indication: Supplementation therapy
     Route: 065
  10. SINEMET [Concomitant]
     Active Substance: CARBIDOPA\LEVODOPA
     Indication: Parkinson^s disease
     Route: 048
  11. MIRTAZAPINE [Concomitant]
     Active Substance: MIRTAZAPINE
     Indication: Anxiety
     Route: 065

REACTIONS (9)
  - Dyskinesia [Unknown]
  - Dystonia [Recovering/Resolving]
  - Musculoskeletal discomfort [Unknown]
  - Dyskinesia [Recovering/Resolving]
  - Somnolence [Unknown]
  - Neck pain [Unknown]
  - Speech disorder [Recovering/Resolving]
  - Therapeutic product effect decreased [Unknown]
  - Disturbance in attention [Unknown]

NARRATIVE: CASE EVENT DATE: 20211019
